FAERS Safety Report 10259475 (Version 2)
Quarter: 2014Q2

REPORT INFORMATION
  Report Type: Spontaneous
  Country: US (occurrence: US)
  Receive Date: 20140625
  Receipt Date: 20140625
  Transmission Date: 20141212
  Serious: No
  Sender: FDA-Public Use
  Company Number: US-ASTELLAS-2014US005993

PATIENT
  Sex: Female

DRUGS (6)
  1. VESICARE [Suspect]
     Indication: HYPERTONIC BLADDER
     Route: 048
     Dates: start: 201405, end: 20140529
  2. VESICARE [Suspect]
     Route: 048
     Dates: start: 201405
  3. GINKO /01003101/ [Suspect]
     Indication: FATIGUE
     Route: 065
     Dates: start: 20140531
  4. GINKO                              /01003101/ [Suspect]
     Indication: DISTURBANCE IN ATTENTION
  5. VITAMIN B12                        /00056201/ [Suspect]
     Indication: FATIGUE
     Dosage: UNK UNK, UNKNOWN FREQ.
     Route: 065
     Dates: start: 20140531
  6. VITAMIN B12                        /00056201/ [Suspect]
     Indication: DISTURBANCE IN ATTENTION

REACTIONS (7)
  - Disturbance in attention [Unknown]
  - Oropharyngeal pain [Unknown]
  - Fatigue [Unknown]
  - Vision blurred [Not Recovered/Not Resolved]
  - Somnolence [Unknown]
  - Wrong technique in drug usage process [Unknown]
  - Treatment noncompliance [Unknown]
